FAERS Safety Report 7247335-5 (Version None)
Quarter: 2011Q1

REPORT INFORMATION
  Report Type: 
  Country: None (occurrence: None)
  Receive Date: 20110127
  Receipt Date: 20110118
  Transmission Date: 20110831
  Serious: Yes (Other)
  Sender: FDA-Public Use
  Company Number: B0696301A

PATIENT
  Age: 54 Year
  Sex: Female

DRUGS (4)
  1. BETAFERON [Concomitant]
     Route: 065
  2. ACYCLOVIR [Suspect]
     Dosage: 800MG SEE DOSAGE TEXT
     Route: 048
     Dates: start: 20110108
  3. ANTIHYPERTENSIVE [Concomitant]
     Route: 065
  4. BETAFERON [Concomitant]
     Route: 065

REACTIONS (3)
  - VASCULITIC RASH [None]
  - OEDEMA PERIPHERAL [None]
  - JOINT SWELLING [None]
